FAERS Safety Report 19912757 (Version 1)
Quarter: 2021Q4

REPORT INFORMATION
  Report Type: Report from Study
  Country: NL (occurrence: NL)
  Receive Date: 20211004
  Receipt Date: 20211004
  Transmission Date: 20220304
  Serious: Yes (Hospitalization)
  Sender: FDA-Public Use
  Company Number: NL-ROCHE-2919480

PATIENT
  Age: 56 Year
  Sex: Male

DRUGS (4)
  1. ATEZOLIZUMAB [Suspect]
     Active Substance: ATEZOLIZUMAB
     Indication: Non-small cell lung cancer
     Dosage: ON 17/AUG/2021, HE RECEIVED THE MOST RECENT DOSE OF ATEZOLIZUMAB PRIOR TO SERIOUS ADVERSE EVENT ONSE
     Route: 041
     Dates: start: 20210415
  2. BEVACIZUMAB [Suspect]
     Active Substance: BEVACIZUMAB
     Indication: Non-small cell lung cancer
     Dosage: ON 17/AUG/2021, HE RECEIVED THE MOST RECENT DOSE OF BEVACIZUMAB PRIOR TO SAE. (CYCLE 8)
     Route: 042
     Dates: start: 20210415
  3. PACLITAXEL [Suspect]
     Active Substance: PACLITAXEL
     Indication: Non-small cell lung cancer
     Dosage: ON 14/JUN/2021, HE RECEIVED THE MOST RECENT DOSE OFCARBOPLATIN PRIOR TO SAE ONSET. CYCLE 4
     Route: 042
     Dates: start: 20210415
  4. CARBOPLATIN [Suspect]
     Active Substance: CARBOPLATIN
     Indication: Non-small cell lung cancer
     Dosage: ON 14/JUN/2021, HE RECEIVED THE MOST RECENT DOSE OF CARBOPLATIN PRIOR TO SAE. CYCLE 4
     Route: 042
     Dates: start: 20210415

REACTIONS (1)
  - Acute kidney injury [Not Recovered/Not Resolved]

NARRATIVE: CASE EVENT DATE: 20210902
